FAERS Safety Report 15333715 (Version 1)
Quarter: 2018Q3

REPORT INFORMATION
  Report Type: Spontaneous
  Country: JP (occurrence: JP)
  Receive Date: 20180830
  Receipt Date: 20180830
  Transmission Date: 20181010
  Serious: Yes (Death, Other)
  Sender: FDA-Public Use
  Company Number: JP-GLAXOSMITHKLINE-JP2018JPN155179

PATIENT
  Age: 80 Year
  Sex: Female

DRUGS (6)
  1. MEPOLIZUMAB [Suspect]
     Active Substance: MEPOLIZUMAB
     Indication: ASTHMA
     Dosage: 100 MG, UNK
     Route: 058
     Dates: start: 201708, end: 201807
  2. PRANLUKAST CAPSULE [Concomitant]
     Indication: ASTHMA
     Dosage: UNK
  3. PREDONINE [Concomitant]
     Active Substance: PREDNISOLONE
     Dosage: UNK
  4. SERETIDE [Suspect]
     Active Substance: FLUTICASONE PROPIONATE\SALMETEROL XINAFOATE
     Indication: ASTHMA
     Dosage: 500 ?G, BID
     Route: 055
  5. THEO?DUR [Concomitant]
     Active Substance: THEOPHYLLINE ANHYDROUS
     Dosage: UNK
  6. SPIRIVA RESPIMAT [Concomitant]
     Active Substance: TIOTROPIUM BROMIDE
     Dosage: UNK

REACTIONS (1)
  - Death [Fatal]

NARRATIVE: CASE EVENT DATE: 20180827
